FAERS Safety Report 9706054 (Version 2)
Quarter: 2013Q4

REPORT INFORMATION
  Report Type: Spontaneous
  Country: SE (occurrence: SE)
  Receive Date: 20131123
  Receipt Date: 20131223
  Transmission Date: 20140711
  Serious: Yes (Other)
  Sender: FDA-Public Use
  Company Number: SE-AMGEN-SWESP2013081917

PATIENT
  Age: 62 Year
  Sex: Female
  Weight: 58 kg

DRUGS (4)
  1. PROLIA [Suspect]
     Indication: OSTEOPOROSIS
     Dosage: UNK UNK, Q6MO
     Route: 065
     Dates: start: 201305
  2. OMEPRAZOLE [Concomitant]
     Dosage: 20 MG, AS NECESSARY
     Route: 065
  3. KALCIPOS-D [Concomitant]
     Route: 065
  4. ARCOXIA [Concomitant]
     Route: 065

REACTIONS (6)
  - Oral cavity fistula [Unknown]
  - Osteonecrosis of jaw [Unknown]
  - Oral disorder [Unknown]
  - Oral pain [Unknown]
  - Periodontitis [Unknown]
  - Impaired healing [Recovering/Resolving]
